FAERS Safety Report 6133454-3 (Version None)
Quarter: 2009Q1

REPORT INFORMATION
  Report Type: 
  Country: None (occurrence: None)
  Receive Date: 20090326
  Receipt Date: 20090326
  Transmission Date: 20090719
  Serious: Yes (Hospitalization)
  Sender: FDA-Public Use
  Company Number: PHHO2003NZ01767

PATIENT
  Sex: Female

DRUGS (4)
  1. CGS 20267 T30748+ [Suspect]
     Indication: BREAST CANCER
     Dosage: 2.5 MG, QD
     Route: 048
     Dates: start: 20010907, end: 20030109
  2. CGS 20267 T30748+ [Suspect]
     Dosage: NO TREATMENT
     Dates: start: 20030110, end: 20030224
  3. CGS 20267 T30748+ [Suspect]
     Route: 048
     Dates: start: 20030225
  4. CIPRAMIL [Concomitant]
     Indication: DEPRESSION

REACTIONS (2)
  - INTENTIONAL OVERDOSE [None]
  - SUICIDE ATTEMPT [None]
